FAERS Safety Report 6909778-6 (Version None)
Quarter: 2010Q3

REPORT INFORMATION
  Report Type: 
  Country: None (occurrence: None)
  Receive Date: 20100806
  Receipt Date: 20100729
  Transmission Date: 20110219
  Serious: Yes (Hospitalization)
  Sender: FDA-Public Use
  Company Number: US-BIOGENIDEC-2010BI026205

PATIENT
  Age: 53 Year
  Sex: Female

DRUGS (1)
  1. AVONEX [Suspect]
     Indication: MULTIPLE SCLEROSIS
     Route: 030
     Dates: start: 20050710

REACTIONS (4)
  - ANKLE FRACTURE [None]
  - FALL [None]
  - INTERVERTEBRAL DISC DISORDER [None]
  - SPINAL COLUMN STENOSIS [None]
